FAERS Safety Report 23121877 (Version 2)
Quarter: 2023Q4

REPORT INFORMATION
  Report Type: Spontaneous
  Country: HR (occurrence: HR)
  Receive Date: 20231030
  Receipt Date: 20231109
  Transmission Date: 20240110
  Serious: Yes (Life-Threatening, Hospitalization, Other)
  Sender: FDA-Public Use
  Company Number: HR-ALKALOID-2023HQ23813

PATIENT
  Age: 61 Year
  Sex: Male

DRUGS (9)
  1. HALDOL [Interacting]
     Active Substance: HALOPERIDOL
     Indication: Psychotic disorder
     Route: 065
  2. HALDOL [Interacting]
     Active Substance: HALOPERIDOL
     Indication: Substance-induced psychotic disorder
  3. DIAZEPAM [Suspect]
     Active Substance: DIAZEPAM
     Indication: Psychotic disorder
     Route: 065
  4. DIAZEPAM [Suspect]
     Active Substance: DIAZEPAM
     Indication: Substance-induced psychotic disorder
  5. BACLOFEN [Suspect]
     Active Substance: BACLOFEN
     Indication: Quadriparesis
     Dosage: REQUIRED DOSAGE INCREASE OF INTRATHECAL BACLOFEN PERIODICALLY SINCE 2017.
     Route: 037
     Dates: start: 201708
  6. OLANZAPINE [Suspect]
     Active Substance: OLANZAPINE
     Indication: Psychotic disorder
     Route: 065
  7. OLANZAPINE [Suspect]
     Active Substance: OLANZAPINE
     Indication: Substance-induced psychotic disorder
  8. LORAZEPAM [Suspect]
     Active Substance: LORAZEPAM
     Indication: Psychotic disorder
     Route: 065
  9. LORAZEPAM [Suspect]
     Active Substance: LORAZEPAM
     Indication: Substance-induced psychotic disorder

REACTIONS (6)
  - Coma [Recovered/Resolved]
  - Condition aggravated [Recovered/Resolved]
  - Miosis [Recovered/Resolved]
  - Haemodynamic instability [Recovered/Resolved]
  - Respiratory depression [Recovered/Resolved]
  - Drug interaction [Recovered/Resolved]

NARRATIVE: CASE EVENT DATE: 20220501
